FAERS Safety Report 7958473-3 (Version None)
Quarter: 2011Q4

REPORT INFORMATION
  Report Type: 
  Country: None (occurrence: None)
  Receive Date: 20111205
  Receipt Date: 20111202
  Transmission Date: 20120403
  Serious: Yes (Hospitalization)
  Sender: FDA-Public Use
  Company Number: US-BRISTOL-MYERS SQUIBB COMPANY-14267454

PATIENT
  Age: 31 Year
  Sex: Female

DRUGS (3)
  1. MYCOPHENOLATE MOFETIL (CELLCEPT) [Concomitant]
     Dates: start: 20020701
  2. BELATACEPT [Suspect]
     Indication: RENAL TRANSPLANT
     Route: 042
     Dates: start: 20020630
  3. PREDNISONE TAB [Concomitant]
     Dates: start: 20020701

REACTIONS (1)
  - PYELONEPHRITIS [None]
